FAERS Safety Report 21372560 (Version 1)
Quarter: 2022Q3

REPORT INFORMATION
  Report Type: Spontaneous
  Country: IT (occurrence: IT)
  Receive Date: 20220924
  Receipt Date: 20220924
  Transmission Date: 20221026
  Serious: Yes (Other)
  Sender: FDA-Public Use
  Company Number: IT-009507513-2209ITA008886

PATIENT
  Sex: Male

DRUGS (1)
  1. RIBAVIRIN [Suspect]
     Active Substance: RIBAVIRIN
     Indication: Hepatitis C
     Dosage: UNK
     Route: 048

REACTIONS (1)
  - Haemolysis [Unknown]
